FAERS Safety Report 25477742 (Version 3)
Quarter: 2025Q4

REPORT INFORMATION
  Report Type: Spontaneous
  Country: EU (occurrence: EU)
  Receive Date: 20250625
  Receipt Date: 20251008
  Transmission Date: 20260117
  Serious: Yes (Other)
  Sender: TEVA
  Company Number: EU-TEVA-VS-3344651

PATIENT
  Age: 0 Day

DRUGS (1)
  1. AJOVY [Suspect]
     Active Substance: FREMANEZUMAB-VFRM
     Indication: Product used for unknown indication
     Route: 064
     Dates: start: 20210901, end: 20240701

REACTIONS (2)
  - Foetal exposure during pregnancy [Unknown]
  - Apgar score low [Recovering/Resolving]

NARRATIVE: CASE EVENT DATE: 20250419
